FAERS Safety Report 9707096 (Version 2)
Quarter: 2014Q1

REPORT INFORMATION
  Report Type: Report from Study
  Country: HR (occurrence: HR)
  Receive Date: 20131125
  Receipt Date: 20140205
  Transmission Date: 20141002
  Serious: Yes (Hospitalization)
  Sender: FDA-Public Use
  Company Number: HR-JNJFOC-20131110271

PATIENT
  Age: 45 Year
  Sex: Male
  Weight: 110 kg

DRUGS (2)
  1. STELARA [Suspect]
     Indication: PSORIASIS
     Route: 030
     Dates: start: 20130503, end: 20130822
  2. CONTROLOC [Concomitant]

REACTIONS (2)
  - Psoriatic arthropathy [Recovered/Resolved]
  - Incorrect route of drug administration [Unknown]
